FAERS Safety Report 20163308 (Version 2)
Quarter: 2021Q4

REPORT INFORMATION
  Report Type: Report from Study
  Country: RU (occurrence: None)
  Receive Date: 20211209
  Receipt Date: 20211222
  Transmission Date: 20220303
  Serious: Yes (Death)
  Sender: FDA-Public Use
  Company Number: RU-ROCHE-2973592

PATIENT
  Age: 60 Year
  Sex: Female
  Weight: 67 kg

DRUGS (3)
  1. OBINUTUZUMAB [Suspect]
     Active Substance: OBINUTUZUMAB
     Indication: Follicular lymphoma
     Dosage: ON 25/NOV/2021, SHE RECEIVED LAST DOSE OF OBINUTUZUMAB PRIOR TO SAE.
     Route: 042
     Dates: start: 20210513
  2. ZANUBRUTINIB [Suspect]
     Active Substance: ZANUBRUTINIB
     Indication: Follicular lymphoma
     Dosage: ON 01/DEC/2021, SHE RECEIVED LAST DOSE OF ZANUBRUTINIB PRIOR TO SAE
     Route: 048
     Dates: start: 20210513
  3. ADEMETIONIN [Concomitant]
     Route: 042
     Dates: start: 20211129, end: 20211201

REACTIONS (1)
  - Multiple organ dysfunction syndrome [Fatal]

NARRATIVE: CASE EVENT DATE: 20211201
